FAERS Safety Report 9204591 (Version 1)
Quarter: 2013Q2

REPORT INFORMATION
  Report Type: Spontaneous
  Country: US (occurrence: US)
  Receive Date: 20130402
  Receipt Date: 20130402
  Transmission Date: 20140414
  Serious: No
  Sender: FDA-Public Use
  Company Number: US-ASTRAZENECA-2011SE65460

PATIENT
  Age: 66 Year
  Sex: Female

DRUGS (4)
  1. NEXIUM [Suspect]
     Indication: HIATUS HERNIA
     Dosage: 40 MG
     Route: 048
  2. CRESTOR [Suspect]
     Indication: BLOOD CHOLESTEROL ABNORMAL
     Dosage: 20 MG
     Route: 048
  3. PRILOSEC [Suspect]
     Route: 048
  4. METFORMIN [Concomitant]

REACTIONS (3)
  - Pancreatitis [Unknown]
  - Arthritis [Unknown]
  - Drug ineffective [Unknown]
